FAERS Safety Report 8015781-8 (Version None)
Quarter: 2011Q4

REPORT INFORMATION
  Report Type: 
  Country: None (occurrence: None)
  Receive Date: 20111230
  Receipt Date: 20111215
  Transmission Date: 20120403
  Serious: Yes (Hospitalization)
  Sender: FDA-Public Use
  Company Number: CH-ROCHE-1022647

PATIENT
  Age: 73 Year
  Sex: Male

DRUGS (4)
  1. DIPHENHYDRAMINE HYDROCHLORIDE AND LORAZEPAM [Suspect]
     Indication: SLEEP DISORDER
     Dosage: 0.5 - 1 TAB. DAILY
     Route: 048
  2. QUETIAPINE FUMARATE [Suspect]
     Indication: DEPRESSION
     Route: 048
  3. DIAZEPAM [Suspect]
     Indication: POISONING DELIBERATE
     Route: 048
     Dates: start: 20090824, end: 20090824
  4. TRIMIPRAMINE MALEATE [Suspect]
     Indication: DEPRESSION
     Route: 048

REACTIONS (4)
  - ELECTROCARDIOGRAM QT PROLONGED [None]
  - SUICIDE ATTEMPT [None]
  - COMA [None]
  - INTENTIONAL OVERDOSE [None]
